FAERS Safety Report 6601404-9 (Version None)
Quarter: 2010Q1

REPORT INFORMATION
  Report Type: 
  Country: None (occurrence: None)
  Receive Date: 20100224
  Receipt Date: 20100224
  Transmission Date: 20100710
  Serious: Yes (Other)
  Sender: FDA-Public Use
  Company Number: None

PATIENT
  Sex: Female
  Weight: 66.8 kg

DRUGS (1)
  1. SEROQUEL [Suspect]
     Indication: MOOD ALTERED
     Dosage: 25 MG. ONCE DAILY ORAL
     Route: 048
     Dates: start: 20100205, end: 20100206

REACTIONS (4)
  - AGGRESSION [None]
  - BELLIGERENCE [None]
  - CONFUSIONAL STATE [None]
  - HALLUCINATION [None]
